FAERS Safety Report 22739530 (Version 3)
Quarter: 2025Q1

REPORT INFORMATION
  Report Type: Spontaneous
  Country: US (occurrence: US)
  Receive Date: 20230722
  Receipt Date: 20250303
  Transmission Date: 20250409
  Serious: No
  Sender: NOVARTIS
  Company Number: DE-002147023-NVSC2023US159491

PATIENT
  Sex: Female

DRUGS (1)
  1. LEQVIO [Suspect]
     Active Substance: INCLISIRAN SODIUM
     Indication: Product used for unknown indication
     Route: 058

REACTIONS (3)
  - Vomiting [Unknown]
  - Myalgia [Unknown]
  - Nausea [Unknown]
